FAERS Safety Report 21535097 (Version 1)
Quarter: 2022Q4

REPORT INFORMATION
  Report Type: Spontaneous
  Country: CN (occurrence: CN)
  Receive Date: 20221101
  Receipt Date: 20221101
  Transmission Date: 20230112
  Serious: Yes (Death)
  Sender: FDA-Public Use
  Company Number: CN-PFIZER INC-PV202200087202

PATIENT
  Age: 16 Month
  Sex: Female

DRUGS (16)
  1. MEROPENEM [Suspect]
     Active Substance: MEROPENEM
     Indication: Sepsis
     Dosage: UNK
  2. MEROPENEM [Suspect]
     Active Substance: MEROPENEM
     Indication: Neutropenia
  3. MEROPENEM [Suspect]
     Active Substance: MEROPENEM
     Indication: Ecthyma
  4. VORICONAZOLE [Suspect]
     Active Substance: VORICONAZOLE
     Indication: Acinetobacter infection
     Dosage: UNK
  5. VORICONAZOLE [Suspect]
     Active Substance: VORICONAZOLE
     Indication: Ecthyma
  6. TIGECYCLINE [Suspect]
     Active Substance: TIGECYCLINE
     Indication: Acinetobacter infection
     Dosage: UNK
  7. TIGECYCLINE [Suspect]
     Active Substance: TIGECYCLINE
     Indication: Ecthyma
  8. VANCOMYCIN [Suspect]
     Active Substance: VANCOMYCIN
     Indication: Sepsis
     Dosage: UNK
  9. VANCOMYCIN [Suspect]
     Active Substance: VANCOMYCIN
     Indication: Neutropenia
  10. VANCOMYCIN [Suspect]
     Active Substance: VANCOMYCIN
     Indication: Ecthyma
  11. DAPTOMYCIN [Suspect]
     Active Substance: DAPTOMYCIN
     Indication: Acinetobacter infection
     Dosage: UNK
  12. DAPTOMYCIN [Suspect]
     Active Substance: DAPTOMYCIN
     Indication: Ecthyma
  13. AZITHROMYCIN [Concomitant]
     Active Substance: AZITHROMYCIN
     Indication: Bronchitis
     Dosage: UNK
  14. METHYLPREDNISOLONE [Concomitant]
     Active Substance: METHYLPREDNISOLONE
     Indication: Bronchitis
     Dosage: 1 TO 2 MG/KG/DAY
     Route: 042
  15. PREDNISONE [Concomitant]
     Active Substance: PREDNISONE
     Indication: Bronchitis
     Dosage: UNK
     Route: 048
  16. HUMAN IMMUNOGLOBULIN G [Concomitant]
     Active Substance: HUMAN IMMUNOGLOBULIN G
     Indication: Septic shock
     Route: 042

REACTIONS (5)
  - Drug ineffective [Fatal]
  - Organ failure [Fatal]
  - Septic shock [Fatal]
  - Pathogen resistance [Fatal]
  - Acinetobacter infection [Fatal]
